FAERS Safety Report 9169701 (Version 2)
Quarter: 2013Q2

REPORT INFORMATION
  Report Type: Spontaneous
  Country: US (occurrence: US)
  Receive Date: 20130318
  Receipt Date: 20130403
  Transmission Date: 20140414
  Serious: No
  Sender: FDA-Public Use
  Company Number: US-UCBSA-080795

PATIENT
  Sex: Male

DRUGS (1)
  1. KEPPRA XR [Suspect]
     Indication: CONVULSION
     Dosage: STRENGH : 500 MG

REACTIONS (1)
  - Convulsion [Not Recovered/Not Resolved]
